FAERS Safety Report 13940432 (Version 1)
Quarter: 2017Q3

REPORT INFORMATION
  Report Type: Spontaneous
  Country: FR (occurrence: FR)
  Receive Date: 20170906
  Receipt Date: 20170906
  Transmission Date: 20171127
  Serious: Yes (Hospitalization)
  Sender: FDA-Public Use
  Company Number: FR-PFIZER INC-2017381427

PATIENT
  Age: 82 Year
  Sex: Male

DRUGS (5)
  1. SPIRONOLACTONE. [Suspect]
     Active Substance: SPIRONOLACTONE
     Dosage: UNK
     Route: 048
     Dates: start: 20170727, end: 20170727
  2. DAFALGAN CODEINE [Suspect]
     Active Substance: ACETAMINOPHEN\CODEINE PHOSPHATE
     Dosage: 10 DF, SINGLE
     Route: 048
     Dates: start: 20170727, end: 20170727
  3. AMLOR [Suspect]
     Active Substance: AMLODIPINE BESYLATE
     Dosage: 30 DF, SINGLE
     Route: 048
     Dates: start: 20170727, end: 20170727
  4. PERINDOPRIL [Suspect]
     Active Substance: PERINDOPRIL
     Dosage: 300 MG, SINGLE
     Route: 048
     Dates: start: 20170727, end: 20170727
  5. LAMALINE [Suspect]
     Active Substance: ACETAMINOPHEN\CAFFEINE\OPIUM
     Dosage: 16 DF, SINGLE
     Route: 048
     Dates: start: 20170727, end: 20170727

REACTIONS (8)
  - Vomiting [Recovered/Resolved]
  - Hypotension [Recovered/Resolved]
  - Bundle branch block left [Recovered/Resolved]
  - Vasoplegia syndrome [Recovered/Resolved]
  - Atrioventricular block first degree [Recovered/Resolved]
  - Hyperlactacidaemia [Recovered/Resolved]
  - Headache [Recovered/Resolved]
  - Coma scale abnormal [Recovered/Resolved]

NARRATIVE: CASE EVENT DATE: 20170727
